FAERS Safety Report 5759552-1 (Version None)
Quarter: 2008Q2

REPORT INFORMATION
  Report Type: 
  Country: None (occurrence: None)
  Receive Date: 20080604
  Receipt Date: 20080604
  Transmission Date: 20081010
  Serious: Yes (Death, Disabling)
  Sender: FDA-Public Use
  Company Number: None

PATIENT
  Sex: Female
  Weight: 0.7 kg

DRUGS (1)
  1. NEOPROFEN [Suspect]
     Indication: PATENT DUCTUS ARTERIOSUS REPAIR
     Dosage: 10MG/KG X 1 042;  5MG/KG Q24HRS X 2 DOSES 042
     Dates: start: 20080109, end: 20080111

REACTIONS (5)
  - ABDOMINAL ABSCESS [None]
  - ABDOMINAL DISTENSION [None]
  - ILEAL PERFORATION [None]
  - INTESTINAL PERFORATION [None]
  - SKIN DISCOLOURATION [None]
